FAERS Safety Report 7560167-3 (Version None)
Quarter: 2011Q2

REPORT INFORMATION
  Report Type: 
  Country: None (occurrence: None)
  Receive Date: 20110621
  Receipt Date: 20110613
  Transmission Date: 20111010
  Serious: Yes (Other)
  Sender: FDA-Public Use
  Company Number: A0919548A

PATIENT
  Age: 65 Year
  Sex: Male

DRUGS (8)
  1. COMBIVENT [Concomitant]
  2. ASPIRIN [Concomitant]
  3. PLAVIX [Concomitant]
  4. METOPROLOL TARTRATE [Concomitant]
  5. NITROGLYCERIN [Concomitant]
  6. SIMVASTATIN [Concomitant]
  7. ADVAIR DISKUS 100/50 [Suspect]
     Indication: CHRONIC OBSTRUCTIVE PULMONARY DISEASE
     Route: 055
     Dates: start: 20020301
  8. IBUPROFEN [Concomitant]

REACTIONS (6)
  - MUSCLE SPASMS [None]
  - EXPIRED DRUG ADMINISTERED [None]
  - HEART RATE IRREGULAR [None]
  - CATARACT [None]
  - OVERDOSE [None]
  - MUSCULAR WEAKNESS [None]
